FAERS Safety Report 8576643-0 (Version None)
Quarter: 2012Q3

REPORT INFORMATION
  Report Type: 
  Country: None (occurrence: None)
  Receive Date: 20120807
  Receipt Date: 20120801
  Transmission Date: 20120928
  Serious: Yes (Other)
  Sender: FDA-Public Use
  Company Number: JP-TEVA-328496USA

PATIENT
  Age: 54 Year
  Sex: Female

DRUGS (8)
  1. RABEPRAZOLE SODIUM [Concomitant]
  2. FLUCONAZOLE [Concomitant]
  3. TREANDA [Suspect]
     Indication: B-CELL LYMPHOMA
     Route: 042
     Dates: start: 20110411
  4. RITUXIMAB [Suspect]
     Indication: B-CELL LYMPHOMA
     Route: 042
  5. SODIUM PICOSULFATE HYDRATE [Concomitant]
  6. ETIZOLAM [Concomitant]
  7. GABAPENTIN [Concomitant]
  8. OXYCODONE HCL [Concomitant]

REACTIONS (3)
  - HEPATITIS B [None]
  - URINARY TRACT INFECTION [None]
  - BONE MARROW FAILURE [None]
